FAERS Safety Report 4475341-2 (Version None)
Quarter: 2004Q4

REPORT INFORMATION
  Report Type: 
  Country: None (occurrence: None)
  Receive Date: 20041014
  Receipt Date: 20041014
  Transmission Date: 20050328
  Serious: Yes (Hospitalization)
  Sender: FDA-Public Use
  Company Number: None

PATIENT
  Age: 58 Year
  Sex: Male
  Weight: 75.2971 kg

DRUGS (3)
  1. CELEBREX [Suspect]
     Indication: TONSIL CANCER
     Dates: start: 20040823, end: 20041005
  2. CARBOPLATIN [Concomitant]
  3. TAXOL [Concomitant]

REACTIONS (4)
  - EROSIVE OESOPHAGITIS [None]
  - GASTRITIS [None]
  - NAUSEA [None]
  - VOMITING [None]
